FAERS Safety Report 5899965-0 (Version None)
Quarter: 2008Q3

REPORT INFORMATION
  Report Type: 
  Country: None (occurrence: None)
  Receive Date: 20080926
  Receipt Date: 20080916
  Transmission Date: 20090109
  Serious: Yes (Hospitalization, Other)
  Sender: FDA-Public Use
  Company Number: B0537310A

PATIENT
  Age: 19 Year
  Sex: Female

DRUGS (6)
  1. AUGMENTIN '125' [Suspect]
     Indication: OTITIS MEDIA ACUTE
     Route: 048
     Dates: start: 20070929, end: 20071005
  2. NAPROXEN [Suspect]
     Indication: PAIN
     Route: 048
     Dates: start: 20070929, end: 20071005
  3. TRUVADA [Concomitant]
     Indication: DRUG USE FOR UNKNOWN INDICATION
     Route: 048
  4. AZADOSE [Concomitant]
     Indication: DRUG USE FOR UNKNOWN INDICATION
     Dosage: 600MG EVERY 3 WEEKS
     Route: 048
  5. BACTRIM ADULT [Concomitant]
     Indication: DRUG USE FOR UNKNOWN INDICATION
     Route: 048
  6. LEDERFOLINE [Concomitant]
     Indication: DRUG USE FOR UNKNOWN INDICATION
     Dosage: 15MG EVERY 3 WEEKS
     Route: 048

REACTIONS (8)
  - AGITATION [None]
  - BRONCHITIS [None]
  - DERMATITIS EXFOLIATIVE [None]
  - INSOMNIA [None]
  - PRURITUS [None]
  - RASH [None]
  - RASH PAPULAR [None]
  - URTICARIA [None]
